FAERS Safety Report 17596801 (Version 1)
Quarter: 2020Q1

REPORT INFORMATION
  Report Type: Spontaneous
  Country: JP (occurrence: JP)
  Receive Date: 20200330
  Receipt Date: 20200330
  Transmission Date: 20200409
  Serious: Yes (Hospitalization)
  Sender: FDA-Public Use
  Company Number: JP-UCBSA-2020006416

PATIENT
  Age: 80 Year
  Sex: Female

DRUGS (3)
  1. E KEPPRA [Concomitant]
     Active Substance: LEVETIRACETAM
     Indication: TEMPORAL LOBE EPILEPSY
     Dosage: UNK
     Route: 048
     Dates: start: 20181218
  2. VIMPAT [Suspect]
     Active Substance: LACOSAMIDE
     Indication: TEMPORAL LOBE EPILEPSY
     Dosage: 50 MILLIGRAM, 2X/DAY (BID)
     Route: 048
     Dates: start: 20190109
  3. VIMPAT [Suspect]
     Active Substance: LACOSAMIDE
     Dosage: 100 MILLIGRAM, 2X/DAY (BID)
     Route: 048
     Dates: start: 20190116

REACTIONS (1)
  - Delusion [Recovered/Resolved]

NARRATIVE: CASE EVENT DATE: 201908
